FAERS Safety Report 23812481 (Version 1)
Quarter: 2024Q2

REPORT INFORMATION
  Report Type: Spontaneous
  Country: FR (occurrence: FR)
  Receive Date: 20240503
  Receipt Date: 20240503
  Transmission Date: 20240716
  Serious: Yes (Hospitalization, Other)
  Sender: FDA-Public Use
  Company Number: FR-CELLTRION INC.-2024FR009763

PATIENT

DRUGS (3)
  1. TRUXIMA [Suspect]
     Active Substance: RITUXIMAB-ABBS
     Indication: Marginal zone lymphoma
     Dosage: 375 MG/M2, EVERY 21 DAYS
     Route: 042
     Dates: start: 201902, end: 201906
  2. CYCLOPHOSPHAMIDE [Suspect]
     Active Substance: CYCLOPHOSPHAMIDE
     Indication: Marginal zone lymphoma
     Dosage: 750 MG/M2, EVERY 21 DAYS
     Route: 042
     Dates: start: 201902, end: 201906
  3. ELDISINE [Suspect]
     Active Substance: VINDESINE SULFATE
     Indication: Product used for unknown indication
     Dosage: 3 MG/M2, EVERY 21 DAYS
     Route: 042
     Dates: start: 201902, end: 201906

REACTIONS (2)
  - Polycythaemia vera [Not Recovered/Not Resolved]
  - Intentional product use issue [Unknown]

NARRATIVE: CASE EVENT DATE: 20211001
